FAERS Safety Report 20609510 (Version 1)
Quarter: 2022Q1

REPORT INFORMATION
  Report Type: Spontaneous
  Country: CN (occurrence: CN)
  Receive Date: 20220318
  Receipt Date: 20220318
  Transmission Date: 20220423
  Serious: Yes (Hospitalization)
  Sender: FDA-Public Use
  Company Number: CN-BAXTER-2022BAX005890

PATIENT
  Age: 55 Year
  Sex: Female
  Weight: 63 kg

DRUGS (8)
  1. CYCLOPHOSPHAMIDE [Suspect]
     Active Substance: CYCLOPHOSPHAMIDE
     Indication: Breast cancer female
     Dosage: 0.9% SODIUM CHLORIDE 500 ML + CYCLOPHOSPHAMIDE 950 MG
     Route: 041
     Dates: start: 20220210, end: 20220210
  2. CYCLOPHOSPHAMIDE [Suspect]
     Active Substance: CYCLOPHOSPHAMIDE
     Dosage: DOSE RE-INTRODUCED; 0.9% SODIUM CHLORIDE + CYCLOPHOSPHAMIDE
     Route: 041
     Dates: start: 202203
  3. SODIUM CHLORIDE [Suspect]
     Active Substance: SODIUM CHLORIDE
     Indication: Medication dilution
     Dosage: 0.9% SODIUM CHLORIDE 500 ML + CYCLOPHOSPHAMIDE 950 MG
     Route: 041
     Dates: start: 20220210, end: 20220210
  4. SODIUM CHLORIDE [Suspect]
     Active Substance: SODIUM CHLORIDE
     Dosage: DOSE RE-INTRODUCED; 0.9% SODIUM CHLORIDE + CYCLOPHOSPHAMIDE
     Route: 041
     Dates: start: 202203
  5. DEXTROSE [Suspect]
     Active Substance: DEXTROSE
     Indication: Medication dilution
     Dosage: PIRARUBICIN HYDROCHLORIDE 95 MG + GLUCOSE 500 ML
     Route: 041
     Dates: start: 20220210, end: 20220210
  6. DEXTROSE [Suspect]
     Active Substance: DEXTROSE
     Dosage: DOSE RE-INTRODUCED; PIRARUBICIN HYDROCHLORIDE + GLUCOSE
     Route: 041
     Dates: start: 202203
  7. PIRARUBICIN HYDROCHLORIDE [Suspect]
     Active Substance: PIRARUBICIN HYDROCHLORIDE
     Indication: Breast cancer female
     Dosage: PIRARUBICIN HYDROCHLORIDE 95 MG + GLUCOSE 500 ML
     Route: 041
     Dates: start: 20220210, end: 20220210
  8. PIRARUBICIN HYDROCHLORIDE [Suspect]
     Active Substance: PIRARUBICIN HYDROCHLORIDE
     Dosage: DOSE RE-INTRODUCED; PIRARUBICIN HYDROCHLORIDE + GLUCOSE
     Route: 041
     Dates: start: 202203

REACTIONS (1)
  - Granulocytopenia [Recovering/Resolving]

NARRATIVE: CASE EVENT DATE: 20220303
